FAERS Safety Report 17781427 (Version 3)
Quarter: 2023Q2

REPORT INFORMATION
  Report Type: Spontaneous
  Country: CN (occurrence: CN)
  Receive Date: 20200513
  Receipt Date: 20230412
  Transmission Date: 20230721
  Serious: Yes (Death, Hospitalization, Other)
  Sender: FDA-Public Use
  Company Number: CN-GLAXOSMITHKLINE-CN2020APC078952

PATIENT
  Age: 62 Year
  Sex: Male

DRUGS (7)
  1. CEFUROXIME SODIUM [Suspect]
     Active Substance: CEFUROXIME SODIUM
     Indication: Infection prophylaxis
     Dosage: UNK
  2. CEFUROXIME SODIUM [Suspect]
     Active Substance: CEFUROXIME SODIUM
     Dosage: 1.5 G IN 250 ML OF 0.9% SODIUM CHLORIDE INJECTION
     Route: 042
  3. COBAMAMIDE [Suspect]
     Active Substance: COBAMAMIDE
     Indication: Prophylaxis
     Dosage: UNK
  4. COBAMAMIDE [Suspect]
     Active Substance: COBAMAMIDE
     Dosage: 1.5 MG IN 250 ML OF 0.9% SODIUM CHLORIDE INJECTION
     Route: 042
  5. HEPARIN CALCIUM [Suspect]
     Active Substance: HEPARIN CALCIUM
     Indication: Coagulopathy
     Dosage: UNK
  6. PROPACETAMOL HYDROCHLORIDE [Suspect]
     Active Substance: PROPACETAMOL HYDROCHLORIDE
     Indication: Analgesic therapy
     Dosage: UNK
     Route: 042
  7. PROPACETAMOL HYDROCHLORIDE [Suspect]
     Active Substance: PROPACETAMOL HYDROCHLORIDE
     Dosage: 2.0 G OF PROPACETAMOL HYDROCHLORIDE IN 100 ML OF 0.9% NACL INJECTION
     Route: 042

REACTIONS (16)
  - Acute hepatic failure [Fatal]
  - Multiple organ dysfunction syndrome [Fatal]
  - Abdominal distension [Unknown]
  - Abdominal pain [Unknown]
  - Scleral discolouration [Unknown]
  - Yellow skin [Unknown]
  - Altered state of consciousness [Unknown]
  - Hypoxia [Unknown]
  - Hypotension [Unknown]
  - Hypoglycaemia [Unknown]
  - Acidosis [Unknown]
  - Abdominal tenderness [Unknown]
  - Loss of consciousness [Unknown]
  - Gastrointestinal haemorrhage [Unknown]
  - Sepsis [Unknown]
  - Electrolyte imbalance [Unknown]

NARRATIVE: CASE EVENT DATE: 20180329
